FAERS Safety Report 19877439 (Version 2)
Quarter: 2021Q4

REPORT INFORMATION
  Report Type: Spontaneous
  Country: US (occurrence: US)
  Receive Date: 20210923
  Receipt Date: 20211228
  Transmission Date: 20220303
  Serious: Yes (Other)
  Sender: FDA-Public Use
  Company Number: US-PFIZER INC-202101214529

PATIENT
  Age: 38 Year
  Sex: Female

DRUGS (2)
  1. IBRANCE [Suspect]
     Active Substance: PALBOCICLIB
     Dosage: 125 MG
     Dates: start: 20200925
  2. IBRANCE [Suspect]
     Active Substance: PALBOCICLIB
     Dosage: 125 MG
     Dates: start: 20200804

REACTIONS (7)
  - Neutropenia [Recovering/Resolving]
  - Nausea [Unknown]
  - Fatigue [Unknown]
  - Weight increased [Unknown]
  - Full blood count abnormal [Unknown]
  - Arthralgia [Unknown]
  - Alopecia [Unknown]

NARRATIVE: CASE EVENT DATE: 20200925
